FAERS Safety Report 6643626-7 (Version None)
Quarter: 2010Q1

REPORT INFORMATION
  Report Type: 
  Country: None (occurrence: None)
  Receive Date: 20100320
  Receipt Date: 20100312
  Transmission Date: 20100710
  Serious: Yes (Hospitalization)
  Sender: FDA-Public Use
  Company Number: US-JNJFOC-20100304141

PATIENT
  Sex: Female
  Weight: 58.06 kg

DRUGS (1)
  1. ULTRAM [Suspect]
     Indication: FIBROMYALGIA
     Route: 048

REACTIONS (2)
  - FALL [None]
  - FEMUR FRACTURE [None]
